FAERS Safety Report 18079123 (Version 3)
Quarter: 2020Q3

REPORT INFORMATION
  Report Type: Spontaneous
  Country: US (occurrence: US)
  Receive Date: 20200728
  Receipt Date: 20200803
  Transmission Date: 20201103
  Serious: No
  Sender: FDA-Public Use
  Company Number: US-PFIZER INC-2020285570

PATIENT
  Age: 81 Year
  Sex: Male
  Weight: 74.84 kg

DRUGS (2)
  1. LATANOPROST. [Suspect]
     Active Substance: LATANOPROST
     Dosage: UNK
     Route: 047
     Dates: start: 202007
  2. LATANOPROST. [Suspect]
     Active Substance: LATANOPROST
     Dosage: 1 DROP, 1X/DAY (1 DROP EACH EYE IN THE EVENING)

REACTIONS (1)
  - Eye irritation [Recovered/Resolved]

NARRATIVE: CASE EVENT DATE: 20200726
